FAERS Safety Report 8205344-3 (Version None)
Quarter: 2012Q1

REPORT INFORMATION
  Report Type: 
  Country: None (occurrence: None)
  Receive Date: 20120313
  Receipt Date: 20120302
  Transmission Date: 20120608
  Serious: Yes (Hospitalization)
  Sender: FDA-Public Use
  Company Number: CA-JNJFOC-20120301773

PATIENT
  Sex: Male
  Weight: 113.5 kg

DRUGS (3)
  1. REMICADE [Suspect]
     Indication: RHEUMATOID ARTHRITIS
     Route: 042
     Dates: start: 20120228
  2. WARFARIN SODIUM [Concomitant]
     Route: 048
  3. REMICADE [Suspect]
     Route: 042
     Dates: start: 20111212, end: 20111212

REACTIONS (2)
  - GASTRIC ULCER HAEMORRHAGE [None]
  - DISORIENTATION [None]
